FAERS Safety Report 8802162 (Version 2)
Quarter: 2013Q2

REPORT INFORMATION
  Report Type: Spontaneous
  Country: BE (occurrence: BE)
  Receive Date: 20120921
  Receipt Date: 20130426
  Transmission Date: 20140414
  Serious: Yes (Hospitalization)
  Sender: FDA-Public Use
  Company Number: PHHY2012BE081614

PATIENT
  Age: 60 Year
  Sex: Female

DRUGS (5)
  1. GILENYA [Suspect]
     Indication: MULTIPLE SCLEROSIS
     Dosage: 0.5 MG, QD
     Dates: start: 20120918, end: 20120919
  2. GILENYA [Suspect]
     Dates: start: 20120919, end: 20120920
  3. ALLOPURINOL [Concomitant]
  4. COVERSYL [Concomitant]
     Indication: HYPERTENSION
  5. L-THYROXINE [Concomitant]

REACTIONS (3)
  - Hypotension [Recovered/Resolved]
  - Sinus bradycardia [Recovered/Resolved]
  - Dizziness [Recovered/Resolved]
